FAERS Safety Report 5880401-5 (Version None)
Quarter: 2008Q3

REPORT INFORMATION
  Report Type: 
  Country: None (occurrence: None)
  Receive Date: 20080912
  Receipt Date: 20080606
  Transmission Date: 20090109
  Serious: No
  Sender: FDA-Public Use
  Company Number: US-ABBOTT-08P-163-0436995-00

PATIENT
  Sex: Female
  Weight: 86.26 kg

DRUGS (9)
  1. HUMIRA [Suspect]
     Indication: RHEUMATOID ARTHRITIS
     Route: 058
     Dates: start: 20070701, end: 20071101
  2. HUMIRA [Suspect]
     Indication: RHEUMATOID ARTHRITIS
     Route: 058
     Dates: start: 20070901, end: 20080101
  3. HUMIRA [Suspect]
     Dosage: 40 MG EVERY WEEK FOR 3 WEEKS
     Route: 058
     Dates: start: 20080229
  4. HUMIRA [Suspect]
     Route: 058
  5. METHOTREXATE [Concomitant]
     Indication: RHEUMATOID ARTHRITIS
     Route: 048
     Dates: start: 20070301
  6. PREDNISONE TAB [Concomitant]
     Indication: RHEUMATOID ARTHRITIS
     Route: 048
  7. FOLIC ACID [Concomitant]
     Indication: RHEUMATOID ARTHRITIS
     Route: 048
  8. HYDROXYCHLOROQUINE SULFATE [Concomitant]
     Indication: RHEUMATOID ARTHRITIS
     Route: 048
     Dates: start: 20080201
  9. UNKNOWN INJECTION [Concomitant]
     Dosage: 1 INJECTION IN EACH KNEE
     Route: 050
     Dates: start: 20080201, end: 20080201

REACTIONS (9)
  - ACCIDENTAL EXPOSURE [None]
  - ARTHRALGIA [None]
  - ARTHRITIS [None]
  - BRONCHITIS [None]
  - COUGH [None]
  - JOINT SWELLING [None]
  - NASAL CONGESTION [None]
  - PAIN [None]
  - SINUSITIS [None]
